FAERS Safety Report 20864996 (Version 2)
Quarter: 2022Q2

REPORT INFORMATION
  Report Type: Spontaneous
  Country: US (occurrence: US)
  Receive Date: 20220524
  Receipt Date: 20220615
  Transmission Date: 20220721
  Serious: Yes (Other)
  Sender: FDA-Public Use
  Company Number: US-EPICPHARMA-US-2022EPCSPO00452

PATIENT
  Age: 82 Year
  Sex: Male

DRUGS (4)
  1. FUROSEMIDE [Suspect]
     Active Substance: FUROSEMIDE
     Indication: Diuretic therapy
     Route: 065
  2. ENTRESTO [Suspect]
     Active Substance: SACUBITRIL\VALSARTAN
     Indication: Product used for unknown indication
     Dosage: 24/26 MG
     Route: 048
     Dates: start: 202201
  3. ENTRESTO [Suspect]
     Active Substance: SACUBITRIL\VALSARTAN
     Dosage: DOSE INCREASED TO 49/51 MG
     Route: 065
  4. ENTRESTO [Suspect]
     Active Substance: SACUBITRIL\VALSARTAN
     Dosage: DOSE DECREASED TO 24/26 MG
     Route: 065
     Dates: start: 20220226

REACTIONS (8)
  - Cardiac disorder [Unknown]
  - Joint swelling [Recovering/Resolving]
  - Gait inability [Recovering/Resolving]
  - Dyspnoea [Unknown]
  - Memory impairment [Unknown]
  - Visual impairment [Unknown]
  - Decreased activity [Unknown]
  - Gout [Recovering/Resolving]

NARRATIVE: CASE EVENT DATE: 20220301
